FAERS Safety Report 7834336 (Version 8)
Quarter: 2013Q2

REPORT INFORMATION
  Report Type: Report from Study
  Country: IT (occurrence: IT)
  Receive Date: 20110301
  Receipt Date: 20130507
  Transmission Date: 20140414
  Serious: Yes (Death, Hospitalization)
  Sender: FDA-Public Use
  Company Number: IT-BAYER-2011-015201

PATIENT
  Age: 74 Year
  Sex: Female
  Weight: 50 kg

DRUGS (20)
  1. SORAFENIB (RAF KINASE INHIBITOR) [Suspect]
     Indication: THYROID CANCER
     Dosage: 400 MG, UNK
     Route: 048
     Dates: start: 20101108, end: 20101208
  2. SORAFENIB (RAF KINASE INHIBITOR) [Suspect]
     Indication: THYROID CANCER
     Dosage: 400 MG, BID
     Route: 048
     Dates: start: 20101209, end: 20101223
  3. SORAFENIB (RAF KINASE INHIBITOR) [Suspect]
     Indication: THYROID CANCER
     Dosage: 400 MG, BID
     Route: 048
     Dates: start: 20101227, end: 20110115
  4. SORAFENIB (RAF KINASE INHIBITOR) [Suspect]
     Indication: THYROID CANCER
     Dosage: 200 MG, BID
     Route: 048
     Dates: start: 20110214, end: 20110222
  5. SORAFENIB (RAF KINASE INHIBITOR) [Suspect]
     Indication: THYROID CANCER
     Dosage: UNK
  6. ZOMETA [Concomitant]
     Indication: METASTASES TO BONE
     Dosage: 4 MG, OM
     Dates: start: 201007
  7. EUTIROX [Concomitant]
     Indication: POST PROCEDURAL HYPOTHYROIDISM
     Dosage: DAILY DOSE 75 ?G
     Dates: start: 199808, end: 20110120
  8. EUTIROX [Concomitant]
     Indication: POST PROCEDURAL HYPOTHYROIDISM
     Dosage: 87.5 ?G, UNK
     Dates: start: 20110121
  9. COLECALCIFEROL [Concomitant]
     Indication: HYPOVITAMINOSIS
     Dosage: DAILY DOSE 10000 IU
     Dates: start: 201002
  10. OXYCONTIN [Concomitant]
     Indication: NECK PAIN
     Dosage: DAILY DOSE 10 MG
     Dates: start: 200912, end: 20101222
  11. ACICLOVIR [Concomitant]
     Indication: HERPES ZOSTER
     Dosage: DAILY DOSE 3200 MG
     Dates: start: 20101020, end: 20101102
  12. CACIT [Concomitant]
     Indication: PREMEDICATION
     Dosage: DAILY DOSE 1000 MG
     Dates: start: 201007
  13. MYCOSTATIN [Concomitant]
     Indication: THROAT IRRITATION
     Dosage: DAILY DOSE 100000 U/ML
     Dates: start: 20101115, end: 20101130
  14. DUROGESIC [Concomitant]
     Indication: BONE PAIN
     Dosage: 25 ?G, Q1HR
     Dates: start: 20101223
  15. PARACETAMOL [Concomitant]
     Indication: BONE PAIN
     Dosage: 3000 MG, OM
     Dates: start: 201007
  16. PARACETAMOL [Concomitant]
     Indication: METASTASES TO SPINE
     Dosage: 2000 MG, UNK
     Dates: start: 20101223
  17. LANSOX [Concomitant]
     Indication: PREMEDICATION
     Dosage: DAILY DOSE 30 MG
     Dates: start: 20101223
  18. MEDROL [Concomitant]
     Indication: BONE PAIN
     Dosage: DAILY DOSE 8 MG
     Dates: start: 20101223
  19. XANAX [Concomitant]
     Indication: ANXIETY
     Dosage: DAILY DOSE .5 ?G
     Dates: start: 20101223
  20. PEG [Suspect]
     Indication: PALMAR-PLANTAR ERYTHRODYSAESTHESIA SYNDROME
     Dosage: DAILY DOSE 5 ML
     Dates: start: 20101108

REACTIONS (2)
  - Bone abscess [Not Recovered/Not Resolved]
  - Death [Fatal]
